FAERS Safety Report 13571786 (Version 1)
Quarter: 2017Q2

REPORT INFORMATION
  Report Type: Spontaneous
  Country: US (occurrence: US)
  Receive Date: 20170522
  Receipt Date: 20170522
  Transmission Date: 20170830
  Serious: Yes (Hospitalization)
  Sender: FDA-Public Use
  Company Number: None

PATIENT
  Age: 71 Year
  Sex: Male
  Weight: 77 kg

DRUGS (1)
  1. APIXIBAN [Suspect]
     Active Substance: APIXABAN
     Indication: ATRIAL FIBRILLATION
     Route: 048
     Dates: start: 20151020, end: 20151111

REACTIONS (4)
  - Gastrointestinal ulcer [None]
  - Haematuria [None]
  - Chronic obstructive pulmonary disease [None]
  - Melaena [None]

NARRATIVE: CASE EVENT DATE: 20151024
